FAERS Safety Report 10657436 (Version 4)
Quarter: 2015Q1

REPORT INFORMATION
  Report Type: Spontaneous
  Country: US (occurrence: US)
  Receive Date: 20141217
  Receipt Date: 20150119
  Transmission Date: 20150720
  Serious: Yes (Disabling, Other)
  Sender: FDA-Public Use
  Company Number: US-UNITED THERAPEUTICS-UNT-2014-009509

PATIENT
  Age: 35 Year
  Sex: Female
  Weight: 70.75 kg

DRUGS (6)
  1. REMODULIN [Suspect]
     Active Substance: TREPROSTINIL
     Dosage: 0.042 ?G/KG, CONTINUING
     Route: 058
     Dates: start: 20140815
  2. REMODULIN [Suspect]
     Active Substance: TREPROSTINIL
     Indication: COR PULMONALE CHRONIC
     Dosage: 0.020 ?G/KG, CONTINUING
     Route: 058
     Dates: start: 20140815
  3. REMODULIN [Suspect]
     Active Substance: TREPROSTINIL
     Dosage: 0.030 ?G/KG, CONTINUING
     Route: 058
     Dates: start: 20140815
  4. IMODIUM [Suspect]
     Active Substance: LOPERAMIDE HYDROCHLORIDE
     Indication: PRODUCT USED FOR UNKNOWN INDICATION
  5. ADEMPAS [Concomitant]
     Active Substance: RIOCIGUAT
     Indication: PRODUCT USED FOR UNKNOWN INDICATION
  6. REMODULIN [Suspect]
     Active Substance: TREPROSTINIL
     Indication: PULMONARY HYPERTENSION
     Dosage: 0.044 ?G/KG, CONTINUING
     Route: 058
     Dates: start: 20140814

REACTIONS (16)
  - Abdominal distension [Unknown]
  - Decreased appetite [Unknown]
  - Diarrhoea [Unknown]
  - Nausea [Unknown]
  - Constipation [Unknown]
  - Infusion site erythema [Unknown]
  - Abdominal pain upper [Unknown]
  - Weight decreased [Unknown]
  - Pain in extremity [Unknown]
  - Infusion site pain [Unknown]
  - Cold sweat [Unknown]
  - Ulcer [Unknown]
  - Injection site discharge [Unknown]
  - Bedridden [Unknown]
  - Haematochezia [Unknown]
  - Infusion site induration [Unknown]

NARRATIVE: CASE EVENT DATE: 201410
